FAERS Safety Report 4426339-1 (Version None)
Quarter: 2004Q3

REPORT INFORMATION
  Report Type: 
  Country: None (occurrence: None)
  Receive Date: 20040811
  Receipt Date: 20040806
  Transmission Date: 20050211
  Serious: Yes (Other)
  Sender: FDA-Public Use
  Company Number: 2004225885DE

PATIENT
  Age: 72 Year
  Sex: Female

DRUGS (3)
  1. CABERGOLINE [Suspect]
     Indication: PARKINSON'S DISEASE
     Dosage: ORAL
     Route: 048
     Dates: start: 20040101
  2. LORZAAR PLUS [Concomitant]
  3. DIURETICS [Concomitant]

REACTIONS (6)
  - CARDIOMEGALY [None]
  - DYSPNOEA EXERTIONAL [None]
  - FATIGUE [None]
  - HYPOVENTILATION [None]
  - OEDEMA PERIPHERAL [None]
  - PULMONARY CONGESTION [None]
